FAERS Safety Report 14283002 (Version 13)
Quarter: 2018Q3

REPORT INFORMATION
  Report Type: Spontaneous
  Country: IT (occurrence: IT)
  Receive Date: 20171213
  Receipt Date: 20180816
  Transmission Date: 20181010
  Serious: Yes (Other)
  Sender: FDA-Public Use
  Company Number: IT-TEVA-2017-IT-830687

PATIENT
  Age: 83 Year
  Sex: Female

DRUGS (6)
  1. RAMIPRIL. [Suspect]
     Active Substance: RAMIPRIL
     Indication: HYPERTENSION
     Dosage: 1.5 DF, UNK (AT HOME)
     Route: 048
  2. RAMIPRIL. [Interacting]
     Active Substance: RAMIPRIL
     Dosage: 5 MILLIGRAM DAILY;
     Route: 048
  3. DEXKETOPROFEN [Interacting]
     Active Substance: DEXKETOPROFEN
     Indication: PRODUCT USED FOR UNKNOWN INDICATION
     Dosage: UNKNOWN
     Route: 065
  4. TRAMADOL. [Interacting]
     Active Substance: TRAMADOL
     Indication: ARTHRALGIA
     Dosage: 1 DF UNKNOWN
     Route: 048
  5. TRAMADOL. [Interacting]
     Active Substance: TRAMADOL
     Dosage: 1 DF, UNK
     Route: 048
  6. LANIZAC [Suspect]
     Active Substance: RANITIDINE HYDROCHLORIDE
     Indication: ARTHRALGIA
     Route: 048

REACTIONS (6)
  - Hypertensive crisis [Recovering/Resolving]
  - Drug interaction [Recovering/Resolving]
  - Nausea [Recovering/Resolving]
  - Vertigo [Recovering/Resolving]
  - Malaise [Recovering/Resolving]
  - Vomiting [Recovering/Resolving]

NARRATIVE: CASE EVENT DATE: 20171112
